FAERS Safety Report 8007075-1 (Version None)
Quarter: 2011Q4

REPORT INFORMATION
  Report Type: 
  Country: None (occurrence: None)
  Receive Date: 20111222
  Receipt Date: 20111222
  Transmission Date: 20120403
  Serious: Yes (Hospitalization)
  Sender: FDA-Public Use
  Company Number: None

PATIENT
  Sex: Female
  Weight: 66.5 kg

DRUGS (2)
  1. CISPLATIN [Suspect]
     Dosage: 80 MG
  2. ETOPOSIDE [Suspect]
     Dosage: 498 MG

REACTIONS (3)
  - HYPOTENSION [None]
  - INFECTION [None]
  - FEBRILE NEUTROPENIA [None]
